FAERS Safety Report 9105846 (Version 1)
Quarter: 2013Q1

REPORT INFORMATION
  Report Type: Spontaneous
  Country: JP (occurrence: JP)
  Receive Date: 20130220
  Receipt Date: 20130220
  Transmission Date: 20140127
  Serious: Yes (Hospitalization, Other)
  Sender: FDA-Public Use
  Company Number: JP-PFIZER INC-2013041200

PATIENT
  Age: 43 Year
  Sex: Female

DRUGS (3)
  1. LYRICA [Suspect]
     Indication: NEURALGIA
     Dosage: 75 MG DAILY
     Route: 048
  2. LYRICA [Suspect]
     Indication: FIBROMYALGIA
  3. MEXITIL [Concomitant]
     Indication: NEURALGIA
     Dosage: 100 MG DAILY
     Route: 048

REACTIONS (2)
  - Bipolar disorder [Unknown]
  - Leukopenia [Recovered/Resolved]
